FAERS Safety Report 16705431 (Version 1)
Quarter: 2019Q3

REPORT INFORMATION
  Report Type: Report from Study
  Country: None (occurrence: US)
  Receive Date: 20190815
  Receipt Date: 20190815
  Transmission Date: 20191004
  Serious: Yes (Other)
  Sender: FDA-Public Use
  Company Number: US-ABBVIE-19K-163-2883827-00

PATIENT
  Sex: Female

DRUGS (2)
  1. HUMIRA [Suspect]
     Active Substance: ADALIMUMAB
     Indication: PSORIASIS
  2. HUMIRA [Suspect]
     Active Substance: ADALIMUMAB
     Indication: HIDRADENITIS
     Dosage: CITRATE FREE
     Route: 058

REACTIONS (8)
  - Dry mouth [Unknown]
  - Systemic lupus erythematosus [Unknown]
  - Photosensitivity reaction [Unknown]
  - Muscle spasms [Unknown]
  - Hypoacusis [Unknown]
  - Arthropathy [Unknown]
  - Blood creatine increased [Unknown]
  - Lower limb fracture [Unknown]
